FAERS Safety Report 25200597 (Version 1)
Quarter: 2025Q2

REPORT INFORMATION
  Report Type: Spontaneous
  Country: US (occurrence: US)
  Receive Date: 20250415
  Receipt Date: 20250415
  Transmission Date: 20250716
  Serious: Yes (Death, Hospitalization)
  Sender: CATALYST PHARMA
  Company Number: US-CATALYST PHARMACEUTICALS-US-CATA-25-00528

PATIENT
  Age: 17 Year
  Sex: Male
  Weight: 100.68 kg

DRUGS (9)
  1. AGAMREE [Suspect]
     Active Substance: VAMOROLONE
     Indication: Duchenne muscular dystrophy
     Dosage: 5 ML ONCE DAILY
     Route: 048
     Dates: start: 20240712, end: 20250404
  2. ENALAPRIL [Concomitant]
     Active Substance: ENALAPRIL
     Indication: Cardiovascular event prophylaxis
     Dosage: 2.5 MG TWICE DAILY
     Route: 065
  3. ENALAPRIL [Concomitant]
     Active Substance: ENALAPRIL
     Dosage: 10 MG TWICE DAILY
     Route: 065
  4. FLUOXETINE [Concomitant]
     Active Substance: FLUOXETINE HYDROCHLORIDE
     Indication: Depression
     Dosage: 20 MG DAILY
     Route: 065
  5. METOPROLOL SUCCINATE [Concomitant]
     Active Substance: METOPROLOL SUCCINATE
     Indication: Cardiovascular event prophylaxis
     Dosage: 25 MG DAILY
     Route: 065
  6. SINGULAIR [Concomitant]
     Active Substance: MONTELUKAST SODIUM
     Indication: Asthma
     Dosage: 10 MG DAILY
     Route: 065
  7. SINGULAIR [Concomitant]
     Active Substance: MONTELUKAST SODIUM
     Indication: Hypersensitivity
  8. SPIRONOLACTONE [Concomitant]
     Active Substance: SPIRONOLACTONE
     Indication: Cardiovascular event prophylaxis
     Dosage: 25 MG DAILY
     Route: 065
  9. VITAMIN D3 [Concomitant]
     Active Substance: CHOLECALCIFEROL
     Indication: Hypovitaminosis
     Dosage: 50 MCG DAILY
     Route: 065

REACTIONS (3)
  - Femur fracture [Fatal]
  - Cervical vertebral fracture [Fatal]
  - Critical illness [Fatal]

NARRATIVE: CASE EVENT DATE: 20250404
